FAERS Safety Report 15449983 (Version 1)
Quarter: 2018Q4

REPORT INFORMATION
  Report Type: Spontaneous
  Country: RO (occurrence: RO)
  Receive Date: 20181001
  Receipt Date: 20181001
  Transmission Date: 20190204
  Serious: Yes (Other)
  Sender: FDA-Public Use
  Company Number: RO-SUN PHARMACEUTICAL INDUSTRIES LTD-2018RR-185768

PATIENT
  Sex: Male

DRUGS (6)
  1. PRESTARIUM [Suspect]
     Active Substance: PERINDOPRIL
     Indication: HYPERTENSION
     Dosage: 5 MG, 1-0-1
     Route: 065
  2. BETASERC [Suspect]
     Active Substance: BETAHISTINE
     Indication: HYPERTENSION
     Dosage: 24 MG, 1-0-0
     Route: 065
  3. TERTENSIF SR [Suspect]
     Active Substance: INDAPAMIDE
     Indication: HYPERTENSION
     Dosage: 1-0-0
     Route: 065
  4. DIAPREL [Suspect]
     Active Substance: GLICLAZIDE
     Indication: HYPERTENSION
     Dosage: UNK
     Route: 065
     Dates: start: 20000101
  5. ASPENTER [Suspect]
     Active Substance: ASPIRIN
     Indication: PALPITATIONS
     Dosage: 0-1-0 AFTER MEALS
     Route: 065
  6. SOTALOL. [Suspect]
     Active Substance: SOTALOL
     Indication: HYPERTENSION
     Dosage: 80 MG, 1/2 TABLET, 3 TIMES DAILY
     Route: 065

REACTIONS (1)
  - Condition aggravated [Unknown]
